FAERS Safety Report 21495006 (Version 1)
Quarter: 2022Q4

REPORT INFORMATION
  Report Type: Spontaneous
  Country: US (occurrence: US)
  Receive Date: 20221022
  Receipt Date: 20221022
  Transmission Date: 20230112
  Serious: No
  Sender: FDA-Public Use
  Company Number: US-CELLTRION INC.-2022US004999

PATIENT

DRUGS (3)
  1. INFLIXIMAB [Suspect]
     Active Substance: INFLIXIMAB
     Indication: Juvenile idiopathic arthritis
     Dosage: EVERY 4 WEEKS FOR APPROXIMATELY 3 MONTHS; SUBSEQUENTLY INCREASED TO EVERY 3 WEEKS
  2. ADALIMUMAB [Suspect]
     Active Substance: ADALIMUMAB
     Indication: Juvenile idiopathic arthritis
     Dosage: TOOK FOR 3 MONTHS
  3. METHOTREXATE [Concomitant]
     Active Substance: METHOTREXATE
     Indication: Arthritis
     Dosage: ADDED 1 MONTH BEFORE SWITCHING BIOLOGICS

REACTIONS (3)
  - Parapsoriasis [Recovering/Resolving]
  - Drug eruption [Unknown]
  - Off label use [Unknown]
